FAERS Safety Report 18096829 (Version 1)
Quarter: 2020Q3

REPORT INFORMATION
  Report Type: Spontaneous
  Country: US (occurrence: US)
  Receive Date: 20200731
  Receipt Date: 20200731
  Transmission Date: 20201103
  Serious: No
  Sender: FDA-Public Use
  Company Number: US-CADILA HEALTHCARE LIMITED-US-ZYDUS-046567

PATIENT
  Sex: Female

DRUGS (1)
  1. ATENOLOL+CHLORTHALIDONE [Suspect]
     Active Substance: ATENOLOL\CHLORTHALIDONE
     Indication: PRODUCT USED FOR UNKNOWN INDICATION
     Dosage: ,FREQUENCY :UNKNOWN
     Route: 065

REACTIONS (3)
  - Pruritus [Unknown]
  - Skin reaction [Unknown]
  - Dry skin [Unknown]
